FAERS Safety Report 15220514 (Version 6)
Quarter: 2021Q4

REPORT INFORMATION
  Report Type: Spontaneous
  Country: FR (occurrence: FR)
  Receive Date: 20180731
  Receipt Date: 20211005
  Transmission Date: 20220303
  Serious: Yes (Disabling, Other)
  Sender: FDA-Public Use
  Company Number: FR-PFIZER INC-2018153140

PATIENT
  Age: 77 Year
  Sex: Male

DRUGS (7)
  1. VORICONAZOLE [Suspect]
     Active Substance: VORICONAZOLE
     Indication: Bronchopulmonary aspergillosis
     Dosage: UNK (DOSE REDUCED)
  2. VORICONAZOLE [Suspect]
     Active Substance: VORICONAZOLE
     Dosage: 200 MG, 2X/DAY
  3. VORICONAZOLE [Suspect]
     Active Substance: VORICONAZOLE
     Dosage: 200 MG, DAILY (HALVED)
  4. VORICONAZOLE [Suspect]
     Active Substance: VORICONAZOLE
     Dosage: 100 MG, QD (REDUCED)
  5. VORICONAZOLE [Suspect]
     Active Substance: VORICONAZOLE
     Dosage: 400 MG, QD
  6. VORICONAZOLE [Suspect]
     Active Substance: VORICONAZOLE
     Dosage: 200 MILLIGRAM, BID
  7. VORICONAZOLE [Suspect]
     Active Substance: VORICONAZOLE
     Dosage: 100 MILLIGRAM, QD

REACTIONS (10)
  - Dyschromatopsia [Recovering/Resolving]
  - Retinal toxicity [Recovering/Resolving]
  - Hallucination, visual [Recovered/Resolved]
  - Macular opacity [Recovered/Resolved]
  - Visual field defect [Recovering/Resolving]
  - Photophobia [Not Recovered/Not Resolved]
  - Vision blurred [Recovering/Resolving]
  - Visual acuity reduced transiently [Recovered/Resolved]
  - Visual acuity reduced [Recovering/Resolving]
  - Off label use [Unknown]
